FAERS Safety Report 12554297 (Version 1)
Quarter: 2016Q3

REPORT INFORMATION
  Report Type: Spontaneous
  Country: AU (occurrence: AU)
  Receive Date: 20160713
  Receipt Date: 20160713
  Transmission Date: 20161109
  Serious: Yes (Life-Threatening)
  Sender: FDA-Public Use
  Company Number: AU-PFIZER INC-2016336588

PATIENT
  Age: 64 Year
  Sex: Female

DRUGS (1)
  1. PHENYTOIN SODIUM. [Suspect]
     Active Substance: PHENYTOIN SODIUM
     Indication: AGITATED DEPRESSION
     Dosage: 300 MG, (AT NIGHT)

REACTIONS (4)
  - Liver function test increased [Recovered/Resolved]
  - Rash [Recovered/Resolved]
  - Pyrexia [Unknown]
  - Drug reaction with eosinophilia and systemic symptoms [Recovered/Resolved]
